FAERS Safety Report 24142611 (Version 1)
Quarter: 2024Q3

REPORT INFORMATION
  Report Type: Spontaneous
  Country: US (occurrence: US)
  Receive Date: 20240726
  Receipt Date: 20240726
  Transmission Date: 20241017
  Serious: No
  Sender: DAIICHI
  Company Number: US-DAIICHI SANKYO, INC.-DSU-2024-137527AA

PATIENT
  Sex: Female

DRUGS (1)
  1. TRASTUZUMAB DERUXTECAN [Suspect]
     Active Substance: TRASTUZUMAB DERUXTECAN
     Indication: Product used for unknown indication
     Dosage: UNK
     Route: 065

REACTIONS (9)
  - Alopecia [Unknown]
  - Pain [Unknown]
  - Headache [Unknown]
  - Gastritis [Unknown]
  - Hypovolaemia [Unknown]
  - Loss of consciousness [Unknown]
  - Ulcerative keratitis [Unknown]
  - Vision blurred [Unknown]
  - Dry eye [Unknown]
